FAERS Safety Report 9630573 (Version 4)
Quarter: 2014Q2

REPORT INFORMATION
  Report Type: Report from Study
  Country: US (occurrence: US)
  Receive Date: 20131018
  Receipt Date: 20140508
  Transmission Date: 20141212
  Serious: Yes (Hospitalization, Other)
  Sender: FDA-Public Use
  Company Number: PHEH2013US021484

PATIENT
  Age: 34 Year
  Sex: Female
  Weight: 120.18 kg

DRUGS (4)
  1. GILENYA [Suspect]
     Indication: RELAPSING-REMITTING MULTIPLE SCLEROSIS
     Dosage: 0.5 MG, QD
     Route: 048
     Dates: start: 20131011, end: 20131013
  2. OXCARBAZEPINE [Concomitant]
     Indication: PAIN
     Route: 048
     Dates: start: 201310
  3. HYDROCODONE [Concomitant]
     Indication: PAIN
     Route: 048
     Dates: start: 20090317
  4. DEXTROMETHORPHAN [Concomitant]
     Indication: FATIGUE
     Dosage: 10 MG, UNK
     Route: 048
     Dates: start: 20090317

REACTIONS (10)
  - Pain [Unknown]
  - Cardiac disorder [Recovering/Resolving]
  - Dyspnoea [Recovering/Resolving]
  - Blood pressure increased [Not Recovered/Not Resolved]
  - Arthralgia [Unknown]
  - Stress [Unknown]
  - Thyroxine decreased [Unknown]
  - Malaise [Unknown]
  - Dizziness [Unknown]
  - Headache [Unknown]
